FAERS Safety Report 4853860-4 (Version None)
Quarter: 2005Q4

REPORT INFORMATION
  Report Type: 
  Country: None (occurrence: None)
  Receive Date: 20051213
  Receipt Date: 20051128
  Transmission Date: 20060501
  Serious: No
  Sender: FDA-Public Use
  Company Number: US_0509121952

PATIENT
  Age: 55 Year
  Weight: 277 kg

DRUGS (2)
  1. OLANZAPINE [Suspect]
     Indication: PSYCHOTIC DISORDER
     Dosage: 10MG DAILY (1/D) ORAL
     Route: 048
     Dates: start: 20030414, end: 20040713
  2. OLANZAPINE [Suspect]
     Indication: PSYCHOTIC DISORDER
     Dosage: 10MG DAILY (1/D) ORAL
     Route: 048
     Dates: start: 20010723, end: 20050101

REACTIONS (6)
  - ANAEMIA [None]
  - DIABETES MELLITUS [None]
  - HAEMORRHOIDAL HAEMORRHAGE [None]
  - INJURY [None]
  - RECTAL HAEMORRHAGE [None]
  - WEIGHT INCREASED [None]
